FAERS Safety Report 7272371-2 (Version None)
Quarter: 2011Q1

REPORT INFORMATION
  Report Type: 
  Country: None (occurrence: None)
  Receive Date: 20110203
  Receipt Date: 20110124
  Transmission Date: 20110831
  Serious: Yes (Other)
  Sender: FDA-Public Use
  Company Number: JP-ACTELION-A-CH2010-40235

PATIENT
  Sex: Female
  Weight: 58 kg

DRUGS (6)
  1. PREDNISOLONE [Concomitant]
  2. LANSOPRAZOLE [Concomitant]
  3. TRACLEER [Suspect]
     Dosage: 62.5 MG, BID
     Route: 048
     Dates: start: 20091113, end: 20100217
  4. TOCOPHERYL NICOTINATE [Concomitant]
  5. TRACLEER [Suspect]
     Indication: PULMONARY ARTERIAL HYPERTENSION
     Dosage: 125 MG, BID
     Route: 048
     Dates: start: 20100218
  6. BERAPROST SODIUM [Concomitant]

REACTIONS (4)
  - BLOOD ALKALINE PHOSPHATASE INCREASED [None]
  - BILIARY CIRRHOSIS PRIMARY [None]
  - GAMMA-GLUTAMYLTRANSFERASE INCREASED [None]
  - CONCOMITANT DISEASE AGGRAVATED [None]
